FAERS Safety Report 19196664 (Version 2)
Quarter: 2021Q2

REPORT INFORMATION
  Report Type: Spontaneous
  Country: PL (occurrence: PL)
  Receive Date: 20210429
  Receipt Date: 20210517
  Transmission Date: 20210717
  Serious: Yes (Hospitalization)
  Sender: FDA-Public Use
  Company Number: PL-NOVOPROD-804339

PATIENT
  Age: 26 Year
  Sex: Female
  Weight: 58 kg

DRUGS (8)
  1. ACARD [ACETYLSALICYLIC ACID] [Concomitant]
     Active Substance: ASPIRIN
     Indication: PROPHYLAXIS
     Dosage: 150 MG, QD
     Route: 048
  2. MAGNE B6 [Concomitant]
     Active Substance: MAGNESIUM\PYRIDOXINE
     Dosage: 4 X 2 TABLETS DAILY
  3. KALIPOZ [Concomitant]
     Active Substance: POTASSIUM CHLORIDE
     Dosage: 1 TABLET DAILY
     Route: 065
  4. EUTHYROX [Concomitant]
     Active Substance: LEVOTHYROXINE SODIUM
     Dosage: DAILY DOSE DECREASING: 88 UG DURING 1ST TRIMESTER, 75 UG DURING 2ND AND 3RD TRIMESTER
     Route: 048
  5. FOLIC ACID. [Concomitant]
     Active Substance: FOLIC ACID
     Dosage: 1 TABLET DAILY
     Route: 048
  6. NOVORAPID [Suspect]
     Active Substance: INSULIN ASPART
     Dosage: 84 UNITS DURING 2ND AND 3RD TRIMESTER
     Route: 058
  7. NOVORAPID [Suspect]
     Active Substance: INSULIN ASPART
     Indication: TYPE 1 DIABETES MELLITUS
     Dosage: DAILY DOSE 40 UNITS DURING 1ST TRIMESTER
     Route: 058
  8. IRON [Concomitant]
     Active Substance: IRON
     Dosage: UNK
     Route: 065

REACTIONS (4)
  - COVID-19 [Recovered/Resolved]
  - Maternal exposure during pregnancy [Recovered/Resolved]
  - Premature delivery [Recovered/Resolved]
  - Hyperglycaemia [Unknown]

NARRATIVE: CASE EVENT DATE: 20210329
